FAERS Safety Report 10280719 (Version 3)
Quarter: 2014Q3

REPORT INFORMATION
  Report Type: Spontaneous
  Country: JP (occurrence: JP)
  Receive Date: 20140707
  Receipt Date: 20140711
  Transmission Date: 20150326
  Serious: Yes (Life-Threatening)
  Sender: FDA-Public Use
  Company Number: JP-PFIZER INC-2014179342

PATIENT
  Age: 74 Year
  Sex: Male

DRUGS (8)
  1. ZOSYN [Suspect]
     Active Substance: PIPERACILLIN SODIUM\TAZOBACTAM SODIUM
     Indication: CHOLECYSTITIS
     Dosage: 4.5 G, 4X/DAY
     Route: 042
     Dates: start: 20140409, end: 20140412
  2. CALONAL [Suspect]
     Active Substance: ACETAMINOPHEN
     Dosage: 1500 MG, DAILY
     Route: 048
     Dates: start: 20140428, end: 20140514
  3. ZOSYN [Suspect]
     Active Substance: PIPERACILLIN SODIUM\TAZOBACTAM SODIUM
     Indication: PNEUMONIA
     Dosage: 2.25 G, 4X/DAY
     Route: 042
     Dates: start: 20140503, end: 20140507
  4. ISCOTIN [Suspect]
     Active Substance: ISONIAZID
     Indication: MENINGITIS TUBERCULOUS
     Dosage: 300\ MG, DAILY
     Route: 048
     Dates: start: 20140326, end: 20140507
  5. PYRAMIDE [Suspect]
     Active Substance: PYRAZINAMIDE
     Indication: MENINGITIS TUBERCULOUS
     Dosage: 1.2 G, DAILY
     Route: 048
     Dates: start: 20140326, end: 20140507
  6. EBUTOL [Suspect]
     Active Substance: ETHAMBUTOL HYDROCHLORIDE
     Indication: MENINGITIS TUBERCULOUS
     Dosage: 750 MG, DAILY
     Route: 048
     Dates: start: 20140326, end: 20140507
  7. RIFAMPICIN [Suspect]
     Active Substance: RIFAMPIN
     Indication: MENINGITIS TUBERCULOUS
     Dosage: 600 MG, DAILY
     Route: 048
     Dates: start: 20140326, end: 20140507
  8. SULFAMETHOXAZOLE AND TRIMETHOPRIM [Suspect]
     Active Substance: SULFAMETHOXAZOLE\TRIMETHOPRIM
     Indication: INFECTION PROPHYLAXIS
     Dosage: 1 DF, DAILY
     Route: 048
     Dates: start: 20140510, end: 20140511

REACTIONS (2)
  - Renal disorder [Not Recovered/Not Resolved]
  - Toxic epidermal necrolysis [Not Recovered/Not Resolved]

NARRATIVE: CASE EVENT DATE: 20140503
